FAERS Safety Report 20310665 (Version 3)
Quarter: 2022Q1

REPORT INFORMATION
  Report Type: Report from Study
  Country: US (occurrence: US)
  Receive Date: 20220107
  Receipt Date: 20220323
  Transmission Date: 20220423
  Serious: Yes (Hospitalization)
  Sender: FDA-Public Use
  Company Number: US-TAKEDA-US202005004

PATIENT
  Age: 45 Year
  Sex: Female

DRUGS (43)
  1. HUMAN C1-ESTERASE INHIBITOR [Suspect]
     Active Substance: HUMAN C1-ESTERASE INHIBITOR
     Indication: Immune system disorder
     Dosage: 2500 INTERNATIONAL UNIT, QOD
     Route: 042
     Dates: start: 2015
  2. HUMAN C1-ESTERASE INHIBITOR [Suspect]
     Active Substance: HUMAN C1-ESTERASE INHIBITOR
     Indication: Immune system disorder
     Dosage: 2500 INTERNATIONAL UNIT, QOD
     Route: 042
     Dates: start: 2015
  3. HUMAN C1-ESTERASE INHIBITOR [Suspect]
     Active Substance: HUMAN C1-ESTERASE INHIBITOR
     Indication: Immune system disorder
     Dosage: 2500 INTERNATIONAL UNIT, QOD
     Route: 042
     Dates: start: 2015
  4. HUMAN C1-ESTERASE INHIBITOR [Suspect]
     Active Substance: HUMAN C1-ESTERASE INHIBITOR
     Dosage: 1500 INTERNATIONAL UNIT
     Route: 042
     Dates: start: 201503
  5. HUMAN C1-ESTERASE INHIBITOR [Suspect]
     Active Substance: HUMAN C1-ESTERASE INHIBITOR
     Dosage: 1500 INTERNATIONAL UNIT
     Route: 042
     Dates: start: 201503
  6. HUMAN C1-ESTERASE INHIBITOR [Suspect]
     Active Substance: HUMAN C1-ESTERASE INHIBITOR
     Dosage: 1500 INTERNATIONAL UNIT
     Route: 042
     Dates: start: 201503
  7. HUMAN C1-ESTERASE INHIBITOR [Suspect]
     Active Substance: HUMAN C1-ESTERASE INHIBITOR
     Dosage: 1500 INTERNATIONAL UNIT, Q72H
     Route: 042
     Dates: start: 20150323
  8. HUMAN C1-ESTERASE INHIBITOR [Suspect]
     Active Substance: HUMAN C1-ESTERASE INHIBITOR
     Dosage: 1500 INTERNATIONAL UNIT, Q72H
     Route: 042
     Dates: start: 20150323
  9. HUMAN C1-ESTERASE INHIBITOR [Suspect]
     Active Substance: HUMAN C1-ESTERASE INHIBITOR
     Dosage: 1500 INTERNATIONAL UNIT, Q72H
     Route: 042
     Dates: start: 20150323
  10. HUMAN C1-ESTERASE INHIBITOR [Suspect]
     Active Substance: HUMAN C1-ESTERASE INHIBITOR
     Dosage: 1500 INTERNATIONAL UNIT, Q72H
     Route: 042
     Dates: start: 20150324
  11. HUMAN C1-ESTERASE INHIBITOR [Suspect]
     Active Substance: HUMAN C1-ESTERASE INHIBITOR
     Dosage: 1500 INTERNATIONAL UNIT, Q72H
     Route: 042
     Dates: start: 20150324
  12. HUMAN C1-ESTERASE INHIBITOR [Suspect]
     Active Substance: HUMAN C1-ESTERASE INHIBITOR
     Dosage: 1500 INTERNATIONAL UNIT, Q72H
     Route: 042
     Dates: start: 20150324
  13. HUMAN C1-ESTERASE INHIBITOR [Suspect]
     Active Substance: HUMAN C1-ESTERASE INHIBITOR
     Dosage: 1500 INTERNATIONAL UNIT, Q72H
     Route: 042
     Dates: start: 20190813
  14. HUMAN C1-ESTERASE INHIBITOR [Suspect]
     Active Substance: HUMAN C1-ESTERASE INHIBITOR
     Dosage: 1500 INTERNATIONAL UNIT, Q72H
     Route: 042
     Dates: start: 20190813
  15. HUMAN C1-ESTERASE INHIBITOR [Suspect]
     Active Substance: HUMAN C1-ESTERASE INHIBITOR
     Dosage: 1500 INTERNATIONAL UNIT, Q72H
     Route: 042
     Dates: start: 20190813
  16. HUMAN C1-ESTERASE INHIBITOR [Suspect]
     Active Substance: HUMAN C1-ESTERASE INHIBITOR
     Dosage: 2500 INTERNATIONAL UNIT, QOD
     Route: 042
     Dates: start: 20150323
  17. HUMAN C1-ESTERASE INHIBITOR [Suspect]
     Active Substance: HUMAN C1-ESTERASE INHIBITOR
     Dosage: 2500 INTERNATIONAL UNIT, QOD
     Route: 042
     Dates: start: 20150323
  18. HUMAN C1-ESTERASE INHIBITOR [Suspect]
     Active Substance: HUMAN C1-ESTERASE INHIBITOR
     Dosage: 2500 INTERNATIONAL UNIT, QOD
     Route: 042
     Dates: start: 20150323
  19. HUMAN C1-ESTERASE INHIBITOR [Suspect]
     Active Substance: HUMAN C1-ESTERASE INHIBITOR
     Dosage: 2500 INTERNATIONAL UNIT, QOD
     Route: 042
     Dates: start: 20150324
  20. HUMAN C1-ESTERASE INHIBITOR [Suspect]
     Active Substance: HUMAN C1-ESTERASE INHIBITOR
     Dosage: 2500 INTERNATIONAL UNIT, QOD
     Route: 042
     Dates: start: 20150324
  21. HUMAN C1-ESTERASE INHIBITOR [Suspect]
     Active Substance: HUMAN C1-ESTERASE INHIBITOR
     Dosage: 2500 INTERNATIONAL UNIT, QOD
     Route: 042
     Dates: start: 20150324
  22. HUMAN C1-ESTERASE INHIBITOR [Suspect]
     Active Substance: HUMAN C1-ESTERASE INHIBITOR
     Dosage: 2500 INTERNATIONAL UNIT, QOD
     Route: 042
     Dates: start: 20150325
  23. HUMAN C1-ESTERASE INHIBITOR [Suspect]
     Active Substance: HUMAN C1-ESTERASE INHIBITOR
     Dosage: 2500 INTERNATIONAL UNIT, QOD
     Route: 042
     Dates: start: 20150325
  24. HUMAN C1-ESTERASE INHIBITOR [Suspect]
     Active Substance: HUMAN C1-ESTERASE INHIBITOR
     Dosage: 2500 INTERNATIONAL UNIT, QOD
     Route: 042
     Dates: start: 20150325
  25. HUMAN C1-ESTERASE INHIBITOR [Suspect]
     Active Substance: HUMAN C1-ESTERASE INHIBITOR
     Dosage: 2500 INTERNATIONAL UNIT, QOD
     Route: 042
     Dates: start: 201503
  26. HUMAN C1-ESTERASE INHIBITOR [Suspect]
     Active Substance: HUMAN C1-ESTERASE INHIBITOR
     Dosage: 2500 INTERNATIONAL UNIT, QOD
     Route: 042
     Dates: start: 201503
  27. HUMAN C1-ESTERASE INHIBITOR [Suspect]
     Active Substance: HUMAN C1-ESTERASE INHIBITOR
     Dosage: 2500 INTERNATIONAL UNIT, QOD
     Route: 042
     Dates: start: 201503
  28. HUMAN C1-ESTERASE INHIBITOR [Suspect]
     Active Substance: HUMAN C1-ESTERASE INHIBITOR
     Dosage: 2500 INTERNATIONAL UNIT, QOD
     Route: 042
     Dates: start: 20200520
  29. HUMAN C1-ESTERASE INHIBITOR [Suspect]
     Active Substance: HUMAN C1-ESTERASE INHIBITOR
     Dosage: 2500 INTERNATIONAL UNIT, QOD
     Route: 042
     Dates: start: 20200520
  30. HUMAN C1-ESTERASE INHIBITOR [Suspect]
     Active Substance: HUMAN C1-ESTERASE INHIBITOR
     Dosage: 2500 INTERNATIONAL UNIT, QOD
     Route: 042
     Dates: start: 20200520
  31. HUMAN C1-ESTERASE INHIBITOR [Suspect]
     Active Substance: HUMAN C1-ESTERASE INHIBITOR
     Dosage: 2500 INTERNATIONAL UNIT, QOD
     Route: 042
     Dates: start: 202005
  32. HUMAN C1-ESTERASE INHIBITOR [Suspect]
     Active Substance: HUMAN C1-ESTERASE INHIBITOR
     Dosage: 2500 INTERNATIONAL UNIT, QOD
     Route: 042
     Dates: start: 202005
  33. HUMAN C1-ESTERASE INHIBITOR [Suspect]
     Active Substance: HUMAN C1-ESTERASE INHIBITOR
     Dosage: 2500 INTERNATIONAL UNIT, QOD
     Route: 042
     Dates: start: 202005
  34. HUMAN C1-ESTERASE INHIBITOR [Suspect]
     Active Substance: HUMAN C1-ESTERASE INHIBITOR
     Dosage: 2500 INTERNATIONAL UNIT, QOD
     Route: 042
     Dates: start: 202006
  35. HUMAN C1-ESTERASE INHIBITOR [Suspect]
     Active Substance: HUMAN C1-ESTERASE INHIBITOR
     Dosage: 2500 INTERNATIONAL UNIT, QOD
     Route: 042
     Dates: start: 202006
  36. HUMAN C1-ESTERASE INHIBITOR [Suspect]
     Active Substance: HUMAN C1-ESTERASE INHIBITOR
     Dosage: 2500 INTERNATIONAL UNIT, QOD
     Route: 042
     Dates: start: 202006
  37. HUMAN C1-ESTERASE INHIBITOR [Suspect]
     Active Substance: HUMAN C1-ESTERASE INHIBITOR
     Dosage: 2500 INTERNATIONAL UNIT, QOD
     Route: 042
     Dates: start: 20200515
  38. HUMAN C1-ESTERASE INHIBITOR [Suspect]
     Active Substance: HUMAN C1-ESTERASE INHIBITOR
     Dosage: 2500 INTERNATIONAL UNIT, QOD
     Route: 042
     Dates: start: 20200515
  39. HUMAN C1-ESTERASE INHIBITOR [Suspect]
     Active Substance: HUMAN C1-ESTERASE INHIBITOR
     Dosage: 2500 INTERNATIONAL UNIT, QOD
     Route: 042
     Dates: start: 20200515
  40. FIRAZYR [Suspect]
     Active Substance: ICATIBANT ACETATE
     Indication: Hereditary angioedema
     Dosage: 30 MILLIGRAM, PRN
     Route: 058
     Dates: start: 201510
  41. FIRAZYR [Suspect]
     Active Substance: ICATIBANT ACETATE
     Indication: Hereditary angioedema
     Dosage: 30 MILLIGRAM, PRN
     Route: 058
     Dates: start: 201510
  42. FIRAZYR [Suspect]
     Active Substance: ICATIBANT ACETATE
     Dosage: 30 MILLIGRAM, PRN
     Route: 058
     Dates: start: 20151022
  43. FIRAZYR [Suspect]
     Active Substance: ICATIBANT ACETATE
     Dosage: 30 MILLIGRAM, PRN
     Route: 058
     Dates: start: 20151022

REACTIONS (5)
  - Hereditary angioedema [Unknown]
  - Inappropriate schedule of product administration [Unknown]
  - Product preparation issue [Unknown]
  - Liquid product physical issue [Unknown]
  - Swelling [Unknown]

NARRATIVE: CASE EVENT DATE: 20200129
